FAERS Safety Report 10510501 (Version 1)
Quarter: 2014Q4

REPORT INFORMATION
  Report Type: Other
  Country: DE (occurrence: DE)
  Receive Date: 20141010
  Receipt Date: 20141010
  Transmission Date: 20150528
  Serious: Yes (Other)
  Sender: FDA-Public Use
  Company Number: DE-SUN PHARMACEUTICAL INDUSTRIES LTD-2014SUN02260

PATIENT

DRUGS (3)
  1. VENLAFAXINE HYDROCHLORIDE 37.5 MG TABLET [Suspect]
     Active Substance: VENLAFAXINE HYDROCHLORIDE
     Indication: DEPRESSION
     Dosage: 250 MG, OD
     Route: 048
     Dates: start: 20121123
  2. VENLAFAXINE HYDROCHLORIDE 37.5 MG TABLET [Suspect]
     Active Substance: VENLAFAXINE HYDROCHLORIDE
     Dosage: 225 MG, OD
     Route: 048
     Dates: end: 20130801
  3. RISPERIDON [Suspect]
     Active Substance: RISPERIDONE
     Indication: DEPRESSION
     Dosage: 4 MG, QD
     Route: 048
     Dates: start: 20121123, end: 20130504

REACTIONS (3)
  - Gestational diabetes [Recovered/Resolved]
  - Exposure during pregnancy [None]
  - Pregnancy [Unknown]
